FAERS Safety Report 10440802 (Version 1)
Quarter: 2014Q3

REPORT INFORMATION
  Report Type: Spontaneous
  Country: US (occurrence: None)
  Receive Date: 20140908
  Receipt Date: 20140908
  Transmission Date: 20150326
  Serious: Yes (Other)
  Sender: FDA-Public Use
  Company Number: None

PATIENT
  Age: 81 Year
  Sex: Male
  Weight: 92.08 kg

DRUGS (1)
  1. XARELTO [Suspect]
     Active Substance: RIVAROXABAN
     Indication: PRODUCT USED FOR UNKNOWN INDICATION
     Dosage: 1 A DAY, ONCE DAILY, TAKEN BY MOUTH
     Route: 048

REACTIONS (2)
  - Faecal incontinence [None]
  - Guillain-Barre syndrome [None]

NARRATIVE: CASE EVENT DATE: 20140901
